FAERS Safety Report 6340207-X (Version None)
Quarter: 2009Q3

REPORT INFORMATION
  Report Type: 
  Country: None (occurrence: None)
  Receive Date: 20090903
  Receipt Date: 20090827
  Transmission Date: 20100115
  Serious: Yes (Death, Congenital Anomaly, Other)
  Sender: FDA-Public Use
  Company Number: US-AMGEN-QUU359811

PATIENT
  Sex: Female

DRUGS (4)
  1. ENBREL [Suspect]
     Indication: RHEUMATOID ARTHRITIS
     Route: 064
     Dates: start: 20060501
  2. ENBREL [Suspect]
     Indication: ANKYLOSING SPONDYLITIS
  3. FOLIC ACID [Concomitant]
     Route: 064
  4. VITAMIN TAB [Concomitant]
     Route: 064

REACTIONS (4)
  - CONGENITAL ANOMALY [None]
  - DEATH NEONATAL [None]
  - PATERNAL DRUGS AFFECTING FOETUS [None]
  - PREMATURE BABY [None]
